FAERS Safety Report 7919608-1 (Version None)
Quarter: 2011Q4

REPORT INFORMATION
  Report Type: 
  Country: None (occurrence: None)
  Receive Date: 20111115
  Receipt Date: 20111110
  Transmission Date: 20120403
  Serious: Yes (Other)
  Sender: FDA-Public Use
  Company Number: LEO-2011-00945

PATIENT
  Age: 68 Year
  Sex: Male

DRUGS (1)
  1. TACLONEX [Suspect]
     Indication: PSORIASIS

REACTIONS (1)
  - SQUAMOUS CELL CARCINOMA OF SKIN [None]
